FAERS Safety Report 24456381 (Version 2)
Quarter: 2024Q4

REPORT INFORMATION
  Report Type: Report from Study
  Country: US (occurrence: US)
  Receive Date: 20241017
  Receipt Date: 20241018
  Transmission Date: 20250115
  Serious: No
  Sender: ROCHE
  Company Number: US-ROCHE-3503412

PATIENT
  Age: 72 Year
  Sex: Female

DRUGS (3)
  1. RITUXAN [Suspect]
     Active Substance: RITUXIMAB
     Indication: Rheumatoid arthritis
     Dosage: D1/15 EVERY 4-6 MONTHS, (50 ML)
     Route: 042
  2. RITUXAN [Suspect]
     Active Substance: RITUXIMAB
     Indication: Interstitial lung disease
  3. RITUXAN [Suspect]
     Active Substance: RITUXIMAB
     Indication: Rheumatoid arthritis

REACTIONS (3)
  - Off label use [Unknown]
  - No adverse event [Unknown]
  - Product prescribing error [Unknown]
